FAERS Safety Report 6013833-5 (Version None)
Quarter: 2008Q4

REPORT INFORMATION
  Report Type: 
  Country: None (occurrence: None)
  Receive Date: 20081219
  Receipt Date: 20081208
  Transmission Date: 20090506
  Serious: Yes (Disabling, Other)
  Sender: FDA-Public Use
  Company Number: US-PFIZER INC-2008151458

PATIENT
  Sex: Female

DRUGS (2)
  1. LYRICA [Suspect]
  2. ACCUPRIL [Suspect]

REACTIONS (3)
  - ARTHRITIS [None]
  - GOUT [None]
  - MOBILITY DECREASED [None]
